FAERS Safety Report 7397486-X (Version None)
Quarter: 2011Q2

REPORT INFORMATION
  Report Type: 
  Country: None (occurrence: None)
  Receive Date: 20110406
  Receipt Date: 20110321
  Transmission Date: 20111010
  Serious: Yes (Other)
  Sender: FDA-Public Use
  Company Number: PHHY2011GB23617

PATIENT
  Sex: Female
  Weight: 45 kg

DRUGS (3)
  1. AMITRIPTYLINE [Suspect]
     Dosage: 50 MG
  2. AMITRIPTYLINE [Suspect]
     Indication: DEPRESSION
     Dosage: 40 MG
  3. ATENOLOL [Suspect]
     Dosage: 50 MG

REACTIONS (3)
  - HYPERTENSION [None]
  - MALAISE [None]
  - PALPITATIONS [None]
